FAERS Safety Report 9927182 (Version 1)
Quarter: 2014Q1

REPORT INFORMATION
  Report Type: Spontaneous
  Country: US (occurrence: US)
  Receive Date: 20140226
  Receipt Date: 20140226
  Transmission Date: 20141002
  Serious: No
  Sender: FDA-Public Use
  Company Number: US-AMGEN-USASP2014005740

PATIENT
  Age: 44 Year
  Sex: Male
  Weight: 80.73 kg

DRUGS (1)
  1. ENBREL [Suspect]
     Indication: PSORIASIS
     Dosage: UNK
     Route: 065
     Dates: end: 2006

REACTIONS (2)
  - Drug effect decreased [Unknown]
  - Nail disorder [Unknown]
